FAERS Safety Report 7420154-2 (Version None)
Quarter: 2011Q2

REPORT INFORMATION
  Report Type: 
  Country: None (occurrence: None)
  Receive Date: 20110413
  Receipt Date: 20110413
  Transmission Date: 20111010
  Serious: Yes (Hospitalization, Other)
  Sender: FDA-Public Use
  Company Number: None

PATIENT
  Age: 83 Year
  Sex: Female
  Weight: 49.8957 kg

DRUGS (2)
  1. FOSAMAX [Suspect]
     Indication: OSTEOPOROSIS
     Dosage: WEEKLY ORAL
     Route: 048
  2. BONIVA [Suspect]
     Dosage: 150 MG MONTHLY ORAL
     Route: 048

REACTIONS (2)
  - FEMUR FRACTURE [None]
  - MYALGIA [None]
